FAERS Safety Report 25913298 (Version 1)
Quarter: 2025Q4

REPORT INFORMATION
  Report Type: Other
  Country: EU (occurrence: EU)
  Receive Date: 20251013
  Receipt Date: 20251013
  Transmission Date: 20260117
  Serious: Yes (Life-Threatening, Hospitalization)
  Sender: STRIDES
  Company Number: EU-VITEMA-2025-017

PATIENT
  Age: 65 Year
  Sex: Male

DRUGS (1)
  1. IBUPROFEN [Suspect]
     Active Substance: IBUPROFEN
     Indication: Product used for unknown indication
     Dosage: PATIENT LOW BACK PAIN AND SELF ADMINISTRETED 2 TABLETS OF IBUPROFEN 400 MG (TABLET)
     Route: 048

REACTIONS (3)
  - Hyperkalaemia [Unknown]
  - Oliguria [Unknown]
  - Acute kidney injury [Unknown]
